FAERS Safety Report 23153959 (Version 3)
Quarter: 2023Q4

REPORT INFORMATION
  Report Type: Spontaneous
  Country: US (occurrence: US)
  Receive Date: 20231107
  Receipt Date: 20231213
  Transmission Date: 20240109
  Serious: Yes (Hospitalization, Other)
  Sender: FDA-Public Use
  Company Number: US-BRISTOL-MYERS SQUIBB COMPANY-2023-158936

PATIENT
  Age: 69 Year
  Sex: Male
  Weight: 96.62 kg

DRUGS (1)
  1. POMALYST [Suspect]
     Active Substance: POMALIDOMIDE
     Indication: Plasma cell myeloma
     Dosage: 3 WEEKS ON, 1 WEEK OFF
     Route: 048

REACTIONS (5)
  - Dizziness [Unknown]
  - Peripheral swelling [Unknown]
  - Loss of consciousness [Recovered/Resolved]
  - Dyspnoea [Unknown]
  - Hyperventilation [Unknown]

NARRATIVE: CASE EVENT DATE: 20230501
